FAERS Safety Report 5674252-4 (Version None)
Quarter: 2008Q1

REPORT INFORMATION
  Report Type: 
  Country: None (occurrence: None)
  Receive Date: 20080320
  Receipt Date: 20080317
  Transmission Date: 20080703
  Serious: Yes (Hospitalization, Other)
  Sender: FDA-Public Use
  Company Number: US-BAYER-200817112NA

PATIENT
  Age: 29 Year
  Sex: Female
  Weight: 66 kg

DRUGS (1)
  1. YAZ [Suspect]
     Indication: CONTRACEPTION
     Route: 048
     Dates: start: 20071201

REACTIONS (5)
  - ANAL FISTULA [None]
  - CROHN'S DISEASE [None]
  - INCISIONAL DRAINAGE [None]
  - PROCTALGIA [None]
  - RECTAL ABSCESS [None]
